FAERS Safety Report 21773243 (Version 1)
Quarter: 2022Q4

REPORT INFORMATION
  Report Type: Spontaneous
  Country: US (occurrence: US)
  Receive Date: 20221223
  Receipt Date: 20221223
  Transmission Date: 20230112
  Serious: Yes (Other)
  Sender: FDA-Public Use
  Company Number: US-JNJFOC-20221230671

PATIENT
  Age: 46 Year
  Sex: Female
  Weight: 85 kg

DRUGS (3)
  1. TECLISTAMAB [Suspect]
     Active Substance: TECLISTAMAB
     Indication: Plasma cell myeloma
     Dosage: BOTH WERE 30MG/3 ML VIAL WITH LOT# AS1377PT AND EXPIRATION DATE OF 9/SEPT/2022
     Route: 065
     Dates: start: 20221206
  2. TECLISTAMAB [Suspect]
     Active Substance: TECLISTAMAB
     Dosage: BOTH WERE 30MG/3 ML VIAL WITH LOT# AS1377PT AND EXPIRATION DATE OF 9/SEPT/2022
     Route: 065
     Dates: start: 20221209, end: 20221211
  3. CILTACABTAGENE AUTOLEUCEL [Suspect]
     Active Substance: CILTACABTAGENE AUTOLEUCEL
     Indication: Plasma cell myeloma
     Route: 042

REACTIONS (1)
  - Immune effector cell-associated neurotoxicity syndrome [Recovering/Resolving]

NARRATIVE: CASE EVENT DATE: 20221210
